FAERS Safety Report 18292013 (Version 1)
Quarter: 2020Q3

REPORT INFORMATION
  Report Type: Spontaneous
  Country: US (occurrence: US)
  Receive Date: 20200922
  Receipt Date: 20200922
  Transmission Date: 20201103
  Serious: Yes (Hospitalization, Other)
  Sender: FDA-Public Use
  Company Number: US-AUROBINDO-AUR-APL-2017-38666

PATIENT
  Age: 37 Year
  Sex: Female

DRUGS (1)
  1. MINOCYCLINE [Suspect]
     Active Substance: MINOCYCLINE HYDROCHLORIDE
     Indication: ACNE
     Dosage: UNK
     Route: 065
     Dates: start: 20150507

REACTIONS (11)
  - Rash [Recovered/Resolved]
  - Lymphocytosis [Recovered/Resolved]
  - Eosinophilia [Recovered/Resolved]
  - Chills [Recovered/Resolved]
  - Night sweats [Recovered/Resolved]
  - Pyrexia [Recovered/Resolved]
  - Transaminases increased [Recovered/Resolved]
  - Drug reaction with eosinophilia and systemic symptoms [Recovered/Resolved]
  - Cardiogenic shock [Recovered/Resolved]
  - Eosinophilic myocarditis [Recovered/Resolved]
  - Swelling face [Recovered/Resolved]
